FAERS Safety Report 16541970 (Version 1)
Quarter: 2019Q3

REPORT INFORMATION
  Report Type: Spontaneous
  Country: US (occurrence: US)
  Receive Date: 20190708
  Receipt Date: 20190708
  Transmission Date: 20191004
  Serious: No
  Sender: FDA-Public Use
  Company Number: US-BAUSCH-BL-2019-018131

PATIENT
  Age: 61 Year
  Sex: Male

DRUGS (2)
  1. ALDARA [Suspect]
     Active Substance: IMIQUIMOD
     Indication: PRODUCT USE IN UNAPPROVED INDICATION
  2. ALDARA [Suspect]
     Active Substance: IMIQUIMOD
     Indication: POSTOPERATIVE CARE
     Dosage: USED AT THE CENTER OF THE CHEST (AREA OF KELOID REMOVAL) FOR 3 WEEKS
     Route: 061
     Dates: start: 201905, end: 20190601

REACTIONS (3)
  - Blood potassium decreased [Unknown]
  - Blood creatinine decreased [Unknown]
  - Product use in unapproved indication [Unknown]

NARRATIVE: CASE EVENT DATE: 2019
